FAERS Safety Report 25851766 (Version 1)
Quarter: 2025Q3

REPORT INFORMATION
  Report Type: Spontaneous
  Country: CN (occurrence: CN)
  Receive Date: 20250926
  Receipt Date: 20250926
  Transmission Date: 20251020
  Serious: Yes (Other)
  Sender: Norvium Bioscience
  Company Number: CN-Norvium Bioscience LLC-080558

PATIENT
  Age: 71 Year
  Sex: Male
  Weight: 0 kg

DRUGS (7)
  1. EFAVIRENZ [Interacting]
     Active Substance: EFAVIRENZ
     Indication: HIV infection
     Dates: start: 2005
  2. LAMIVUDINE [Interacting]
     Active Substance: LAMIVUDINE
     Indication: HIV infection
     Dates: start: 2005
  3. TENOFOVIR [Interacting]
     Active Substance: TENOFOVIR
     Indication: HIV infection
     Dates: start: 2005
  4. CYCLOPHOSPHAMIDE [Interacting]
     Active Substance: CYCLOPHOSPHAMIDE
     Indication: Diffuse large B-cell lymphoma
     Dates: start: 20220330
  5. DOXORUBICIN [Interacting]
     Active Substance: DOXORUBICIN
     Indication: Diffuse large B-cell lymphoma
     Dates: start: 20220330
  6. VINCRISTINE [Interacting]
     Active Substance: VINCRISTINE
     Indication: Diffuse large B-cell lymphoma
     Dates: start: 20220330
  7. PREDNISONE [Interacting]
     Active Substance: PREDNISONE
     Indication: Diffuse large B-cell lymphoma
     Dates: start: 20220330

REACTIONS (5)
  - Myelosuppression [Unknown]
  - Liver injury [Unknown]
  - Renal injury [Unknown]
  - Gastrointestinal disorder [Unknown]
  - Drug interaction [Unknown]
